FAERS Safety Report 7962411-7 (Version None)
Quarter: 2011Q4

REPORT INFORMATION
  Report Type: 
  Country: None (occurrence: None)
  Receive Date: 20111207
  Receipt Date: 20111206
  Transmission Date: 20120403
  Serious: Yes (Death)
  Sender: FDA-Public Use
  Company Number: GB-GENZYME-CAMP-1001358

PATIENT

DRUGS (1)
  1. CAMPATH [Suspect]
     Indication: PROGRESSIVE MULTIPLE SCLEROSIS
     Dosage: UNK
     Route: 065

REACTIONS (1)
  - COMPLETED SUICIDE [None]
